FAERS Safety Report 17616630 (Version 1)
Quarter: 2020Q2

REPORT INFORMATION
  Report Type: Spontaneous
  Country: CA (occurrence: CA)
  Receive Date: 20200402
  Receipt Date: 20200402
  Transmission Date: 20200713
  Serious: Yes (Life-Threatening, Hospitalization, Other)
  Sender: FDA-Public Use
  Company Number: CA-TEVA-2020-CA-1216867

PATIENT
  Age: 66 Year
  Sex: Male
  Weight: 61 kg

DRUGS (9)
  1. ATORVASTATIN CALCIUM. [Suspect]
     Active Substance: ATORVASTATIN CALCIUM
     Indication: CARDIOVASCULAR EVENT PROPHYLAXIS
     Dosage: 80 MILLIGRAM DAILY;
     Route: 048
  2. SPIRONOLACTONE. [Concomitant]
     Active Substance: SPIRONOLACTONE
  3. ASA [Concomitant]
     Active Substance: ASPIRIN
  4. METOPROLOL. [Concomitant]
     Active Substance: METOPROLOL
  5. EPCLUSA [Interacting]
     Active Substance: SOFOSBUVIR\VELPATASVIR
     Indication: PRODUCT USED FOR UNKNOWN INDICATION
     Route: 048
  6. RAMIPRIL. [Concomitant]
     Active Substance: RAMIPRIL
  7. CLOPIDOGREL [Concomitant]
     Active Substance: CLOPIDOGREL BISULFATE
  8. CLOPIDOGREL BISULFATE. [Concomitant]
     Active Substance: CLOPIDOGREL BISULFATE
  9. LASIX [Concomitant]
     Active Substance: FUROSEMIDE

REACTIONS (19)
  - Myalgia [Unknown]
  - Troponin increased [Unknown]
  - Blood albumin abnormal [Unknown]
  - Blood urea abnormal [Unknown]
  - Pain [Unknown]
  - Potentiating drug interaction [Unknown]
  - Vomiting [Unknown]
  - Blood creatinine abnormal [Unknown]
  - Blood lactic acid increased [Unknown]
  - Pyrexia [Unknown]
  - Blood creatine phosphokinase abnormal [Unknown]
  - Blood potassium abnormal [Unknown]
  - Muscular weakness [Unknown]
  - Glomerular filtration rate decreased [Unknown]
  - Nausea [Unknown]
  - Aspartate aminotransferase increased [Unknown]
  - Chromaturia [Unknown]
  - Alanine aminotransferase increased [Unknown]
  - International normalised ratio abnormal [Unknown]
